FAERS Safety Report 7257852-X (Version None)
Quarter: 2011Q1

REPORT INFORMATION
  Report Type: 
  Country: None (occurrence: None)
  Receive Date: 20110129
  Receipt Date: 20100527
  Transmission Date: 20110831
  Serious: No
  Sender: FDA-Public Use
  Company Number: US-ABBOTT-10P-163-0647434-00

PATIENT
  Age: 76 Year
  Sex: Male

DRUGS (6)
  1. PROPAFENONE [Concomitant]
     Indication: HEART RATE DECREASED
  2. HUMIRA [Suspect]
     Indication: RHEUMATOID ARTHRITIS
     Dates: start: 20090101
  3. HYDROCHLOROTHIAZIDE [Concomitant]
     Indication: HYPERTENSION
     Route: 048
  4. LISINOPRIL [Concomitant]
     Indication: BLOOD PRESSURE
  5. OMEPRAZOLE [Concomitant]
     Indication: GASTROOESOPHAGEAL REFLUX DISEASE
     Route: 048
  6. DIGOXIN [Concomitant]
     Indication: HEART RATE DECREASED

REACTIONS (1)
  - INJECTION SITE PAIN [None]
